FAERS Safety Report 20632172 (Version 1)
Quarter: 2022Q1

REPORT INFORMATION
  Report Type: Spontaneous
  Country: CN (occurrence: CN)
  Receive Date: 20220324
  Receipt Date: 20220324
  Transmission Date: 20220423
  Serious: Yes (Other)
  Sender: FDA-Public Use
  Company Number: CN-009507513-2203CHN006809

PATIENT
  Age: 74 Year
  Sex: Male

DRUGS (2)
  1. INVANZ [Suspect]
     Active Substance: ERTAPENEM SODIUM
     Indication: Pneumonia
     Dosage: 1 G, ONCE A DAY (QD)
     Route: 041
     Dates: start: 20220204, end: 20220208
  2. LEVOFLOXACIN [Suspect]
     Active Substance: LEVOFLOXACIN
     Indication: Pneumonia
     Dosage: 0.5 G, ONCE A DAY (QD)
     Route: 041
     Dates: start: 20220204, end: 20220208

REACTIONS (4)
  - Hallucination [Recovering/Resolving]
  - Disorganised speech [Recovering/Resolving]
  - Initial insomnia [Unknown]
  - Logorrhoea [Recovering/Resolving]

NARRATIVE: CASE EVENT DATE: 20220201
